FAERS Safety Report 16838443 (Version 1)
Quarter: 2019Q3

REPORT INFORMATION
  Report Type: Spontaneous
  Country: US (occurrence: US)
  Receive Date: 20190923
  Receipt Date: 20190923
  Transmission Date: 20191005
  Serious: No
  Sender: FDA-Public Use
  Company Number: US-ALLERGAN-1933749US

PATIENT
  Sex: Male

DRUGS (1)
  1. ZENPEP [Suspect]
     Active Substance: PANCRELIPASE AMYLASE\PANCRELIPASE LIPASE\PANCRELIPASE PROTEASE
     Indication: PANCREATIC FAILURE
     Dosage: 25K/79K/105K
     Route: 065

REACTIONS (5)
  - Product odour abnormal [Unknown]
  - Product taste abnormal [Unknown]
  - Product dispensing issue [Unknown]
  - Product colour issue [Unknown]
  - Product storage error [Unknown]
